FAERS Safety Report 5338217-4 (Version None)
Quarter: 2007Q2

REPORT INFORMATION
  Report Type: 
  Country: None (occurrence: None)
  Receive Date: 20070327
  Receipt Date: 20070205
  Transmission Date: 20071010
  Serious: Yes (Life-Threatening, Hospitalization)
  Sender: FDA-Public Use
  Company Number: 231978

PATIENT
  Age: 54 Year
  Sex: Female

DRUGS (10)
  1. AVASTIN [Suspect]
     Indication: COLORECTAL CANCER METASTATIC
     Dates: start: 20060701, end: 20061025
  2. FLUOROURACIL [Concomitant]
  3. LEUCOVORIN CALCIUM [Concomitant]
  4. OXALIPLATIN [Concomitant]
  5. ARANESP [Concomitant]
  6. COMPAZINE [Concomitant]
  7. COUMADIN [Concomitant]
  8. NEXIUM [Concomitant]
  9. COLACE (DOCUSATE SODIUM) [Concomitant]
  10. NEULASTA [Concomitant]

REACTIONS (3)
  - IMPAIRED HEALING [None]
  - RECTAL PERFORATION [None]
  - SEPSIS [None]
